FAERS Safety Report 20372064 (Version 2)
Quarter: 2022Q1

REPORT INFORMATION
  Report Type: Spontaneous
  Country: US (occurrence: US)
  Receive Date: 20220124
  Receipt Date: 20220124
  Transmission Date: 20220423
  Serious: Yes (Other)
  Sender: FDA-Public Use
  Company Number: US-FERRINGPH-2021FE04289

PATIENT
  Age: 65 Year
  Sex: Female
  Weight: 52 kg

DRUGS (1)
  1. CLENPIQ [Suspect]
     Active Substance: ANHYDROUS CITRIC ACID\MAGNESIUM OXIDE\SODIUM PICOSULFATE
     Indication: Bowel preparation
     Dosage: UNK, ONCE/SINGLE
     Route: 048
     Dates: start: 20210628, end: 20210628

REACTIONS (11)
  - Colitis ischaemic [Not Recovered/Not Resolved]
  - Dehydration [Not Recovered/Not Resolved]
  - Colon injury [Not Recovered/Not Resolved]
  - Pain [Recovering/Resolving]
  - Illness [Not Recovered/Not Resolved]
  - Flatulence [Recovering/Resolving]
  - Feeling abnormal [Not Recovered/Not Resolved]
  - Unevaluable event [Not Recovered/Not Resolved]
  - Muscle spasms [Not Recovered/Not Resolved]
  - Vomiting [Not Recovered/Not Resolved]
  - Incorrect dose administered [Unknown]

NARRATIVE: CASE EVENT DATE: 20210601
